FAERS Safety Report 5141287-X (Version None)
Quarter: 2006Q4

REPORT INFORMATION
  Report Type: 
  Country: None (occurrence: None)
  Receive Date: 20061101
  Receipt Date: 20061024
  Transmission Date: 20070319
  Serious: Yes (Hospitalization)
  Sender: FDA-Public Use
  Company Number: AT-AVENTIS-200615399EU

PATIENT
  Age: 67 Year
  Sex: Female

DRUGS (8)
  1. ENOXAPARIN SODIUM [Suspect]
     Indication: THROMBOSIS PROPHYLAXIS
     Route: 058
     Dates: start: 20060907, end: 20060907
  2. ENOXAPARIN SODIUM [Suspect]
     Route: 058
     Dates: start: 20060908, end: 20061005
  3. CO-ENAC [Concomitant]
     Indication: HYPERTENSION
     Dates: start: 20060101
  4. METOPROLOL TARTRATE [Concomitant]
     Indication: HYPERTENSION
     Dates: start: 20020101
  5. FURON                              /00032601/ [Concomitant]
     Indication: HYDROTHERAPY
     Dates: start: 20060101
  6. DEFLAMAT                           /00372302/ [Concomitant]
     Indication: BONE DISORDER
     Dates: start: 20060909, end: 20060918
  7. DEFLAMAT                           /00372302/ [Concomitant]
     Indication: PROPHYLAXIS
     Dates: start: 20060909, end: 20060918
  8. AGOPTON [Concomitant]
     Indication: PROPHYLAXIS AGAINST GASTROINTESTINAL ULCER
     Dates: start: 20060909, end: 20060918

REACTIONS (1)
  - ERYTHEMA MULTIFORME [None]
